FAERS Safety Report 9140252 (Version 2)
Quarter: 2013Q4

REPORT INFORMATION
  Report Type: Spontaneous
  Country: GB (occurrence: GB)
  Receive Date: 20130305
  Receipt Date: 20131122
  Transmission Date: 20140711
  Serious: Yes (Hospitalization, Disabling, Other)
  Sender: FDA-Public Use
  Company Number: GB-BAUSCH-BL-2013-001356

PATIENT
  Age: 70 Year
  Sex: Female
  Weight: 58.8 kg

DRUGS (4)
  1. DEXAMETHASONE [Suspect]
     Indication: PLASMA CELL MYELOMA
     Route: 048
     Dates: start: 20121119, end: 20121220
  2. BORTEZOMIB [Suspect]
     Indication: PLASMA CELL MYELOMA
     Route: 058
     Dates: start: 20121210, end: 20121210
  3. BORTEZOMIB [Suspect]
     Route: 058
     Dates: start: 20121119
  4. CODEINE PHOSPHATE/PARACETAMOL [Concomitant]
     Indication: BACK PAIN
     Route: 065
     Dates: start: 20121129, end: 20121220

REACTIONS (12)
  - Renal failure acute [Recovered/Resolved with Sequelae]
  - Constipation [Not Recovered/Not Resolved]
  - Dehydration [Unknown]
  - Incontinence [Unknown]
  - Nausea [Recovered/Resolved]
  - Hypophagia [Unknown]
  - Oedema peripheral [Not Recovered/Not Resolved]
  - Peripheral sensory neuropathy [Recovering/Resolving]
  - Thrombocytopenia [Unknown]
  - Tremor [Unknown]
  - Urinary tract infection [Not Recovered/Not Resolved]
  - Vomiting [Unknown]
